FAERS Safety Report 8934274 (Version 1)
Quarter: 2012Q4

REPORT INFORMATION
  Report Type: 
  Country: US (occurrence: US)
  Receive Date: 20121129
  Receipt Date: 20121129
  Transmission Date: 20130627
  Serious: Yes (Congenital Anomaly, Other)
  Sender: FDA-Public Use
  Company Number: US-PFIZER INC-2012296370

PATIENT
  Sex: Male
  Weight: 3.6 kg

DRUGS (14)
  1. ZOLOFT [Suspect]
     Indication: DEPRESSION
     Dosage: 100 mg, UNK
     Route: 064
  2. ZOLOFT [Suspect]
     Dosage: UNK
     Route: 064
     Dates: start: 20100329
  3. ZOLOFT [Suspect]
     Dosage: 25 mg, 1x/day
     Route: 064
     Dates: start: 20100412
  4. HEPARIN [Concomitant]
     Dosage: UNK
     Route: 064
     Dates: start: 20090417, end: 20091014
  5. SODIUM CHLORIDE [Concomitant]
     Dosage: UNK
     Route: 064
     Dates: start: 20090417, end: 20091014
  6. DEXTROSE [Concomitant]
     Dosage: UNK
     Route: 064
     Dates: start: 20090803
  7. ZOFRAN [Concomitant]
     Dosage: 4 mg, UNK
     Route: 064
     Dates: start: 20090803
  8. MORPHINE [Concomitant]
     Dosage: 4 mg, UNK
     Route: 064
     Dates: start: 20090803
  9. PRENATAL VITAMINS [Concomitant]
     Dosage: UNK
     Route: 064
     Dates: start: 20090806
  10. LORTAB [Concomitant]
     Indication: BACK PAIN
     Dosage: 5/500mg take one tablet orally four times a day (every 6 hours)
     Route: 064
     Dates: start: 20090806
  11. WELLBUTRIN [Concomitant]
     Dosage: 150mg sustained release tablets daily
     Route: 064
     Dates: start: 20090806, end: 20090808
  12. WELLBUTRIN [Concomitant]
     Dosage: 150 mg, 2x/day
     Route: 064
     Dates: start: 20090808
  13. COUMADINE [Concomitant]
     Dosage: 10mg one tablet by mouth daily
     Route: 064
     Dates: start: 20090806, end: 20090904
  14. CLINDAMYCIN [Concomitant]
     Dosage: 300 mg, 4x/day
     Route: 064
     Dates: start: 20100214

REACTIONS (4)
  - Maternal exposure timing unspecified [Unknown]
  - Ventricular septal defect [Unknown]
  - Congenital pigmentation disorder [Unknown]
  - Cardiomyopathy [Unknown]
